FAERS Safety Report 8401232-8 (Version None)
Quarter: 2012Q2

REPORT INFORMATION
  Report Type: 
  Country: None (occurrence: None)
  Receive Date: 20120530
  Receipt Date: 20120530
  Transmission Date: 20120825
  Serious: Yes (Hospitalization)
  Sender: FDA-Public Use
  Company Number: None

PATIENT
  Sex: Male
  Weight: 29.4 kg

DRUGS (6)
  1. CYCLOPHOSPHAMIDE [Suspect]
     Dosage: 1050 MG
     Dates: end: 20120507
  2. METHOTREXATE [Suspect]
     Dosage: 12 MG
     Dates: end: 20120521
  3. PEG-L-ASPARAGINASE (K-H) [Suspect]
     Dosage: 2625 IU
     Dates: end: 20120521
  4. CYTARABINE [Suspect]
     Dosage: 78.8 MG
     Dates: end: 20120517
  5. VINCRISTINE SULFATE [Suspect]
     Dosage: 1.58 MG
     Dates: end: 20120521
  6. MERCAPTOPURINE [Suspect]
     Dosage: 450 MG
     Dates: end: 20120520

REACTIONS (10)
  - HEART RATE INCREASED [None]
  - BODY TEMPERATURE INCREASED [None]
  - RESPIRATORY RATE INCREASED [None]
  - ACTIVATED PARTIAL THROMBOPLASTIN TIME PROLONGED [None]
  - DEEP VEIN THROMBOSIS [None]
  - HEPATIC ENZYME INCREASED [None]
  - HEADACHE [None]
  - WHITE BLOOD CELL COUNT DECREASED [None]
  - HAEMOGLOBIN DECREASED [None]
  - MUSCULAR WEAKNESS [None]
